FAERS Safety Report 8017243-0 (Version None)
Quarter: 2012Q1

REPORT INFORMATION
  Report Type: 
  Country: None (occurrence: None)
  Receive Date: 20120102
  Receipt Date: 20111228
  Transmission Date: 20120608
  Serious: Yes (Death)
  Sender: FDA-Public Use
  Company Number: PHHY2011DE113206

PATIENT
  Sex: Female
  Weight: 72 kg

DRUGS (13)
  1. MORPHINE [Concomitant]
     Dosage: 270 MG, UNK
     Dates: start: 20101201
  2. PILOCARPINE [Concomitant]
     Dosage: 5 MG, UNK
     Dates: start: 20101201
  3. ZOMETA [Suspect]
     Indication: PROPHYLAXIS
     Dosage: 4 MG, EVERY 4 WEEKS
     Route: 042
     Dates: start: 20101220
  4. METAMIZOL [Concomitant]
     Dosage: 2.5 G, UNK
     Dates: start: 20101201
  5. ZOMETA [Suspect]
     Dosage: 4 MG, EVERY 4 WEEKS
     Route: 042
     Dates: start: 20111115
  6. METOCLOPRAMIDE [Concomitant]
     Dosage: 30 MG, UNK
     Dates: start: 20101201
  7. PANTOPRAZOLE [Concomitant]
     Dosage: 40 MG, UNK
     Dates: start: 20101201
  8. METOPROLOL [Concomitant]
     Dosage: 95 MG, UNK
     Dates: start: 20020101
  9. DEXAMETHASONE SODIUM PHOSPHATE [Concomitant]
     Dosage: 4 MG, UNK
     Dates: start: 20101201, end: 20110101
  10. MACROGOL [Concomitant]
  11. ENOXAPARIN [Concomitant]
     Dosage: 80 MG, UNK
     Dates: start: 20100201
  12. EXEMESTANE [Concomitant]
     Dosage: 25 MG, UNK
     Dates: start: 20101220
  13. AMITRIPTYLINE HCL [Concomitant]

REACTIONS (9)
  - RENAL FAILURE [None]
  - METASTASES TO CENTRAL NERVOUS SYSTEM [None]
  - SOMNOLENCE [None]
  - HYPERCALCAEMIA [None]
  - DRUG INEFFECTIVE [None]
  - NEOPLASM MALIGNANT [None]
  - GENERAL PHYSICAL HEALTH DETERIORATION [None]
  - NEOPLASM PROGRESSION [None]
  - ASTHENIA [None]
